FAERS Safety Report 24129891 (Version 1)
Quarter: 2024Q3

REPORT INFORMATION
  Report Type: Report from Study
  Country: CA (occurrence: None)
  Receive Date: 20240724
  Receipt Date: 20240724
  Transmission Date: 20241016
  Serious: Yes (Hospitalization, Other)
  Sender: ASTRAZENECA
  Company Number: 2023A187518

PATIENT
  Sex: Male

DRUGS (10)
  1. FASENRA [Suspect]
     Active Substance: BENRALIZUMAB
     Indication: Asthma
     Route: 058
     Dates: start: 20190614
  2. DUPIXENT [Concomitant]
     Active Substance: DUPILUMAB
  3. ALBUTEROL [Concomitant]
     Active Substance: ALBUTEROL
     Dosage: PRN
  4. ATORVASTATIN [Concomitant]
     Active Substance: ATORVASTATIN
  5. AMOXICILLIN [Concomitant]
     Active Substance: AMOXICILLIN
  6. SPIRIVA [Concomitant]
     Active Substance: TIOTROPIUM BROMIDE MONOHYDRATE
     Dosage: 2 SPRAYS OD
  7. PREDNISONE [Concomitant]
     Active Substance: PREDNISONE
     Dosage: 5 MG
  8. PULMICOURT [Concomitant]
  9. ADVAIR HFA [Concomitant]
     Active Substance: FLUTICASONE PROPIONATE\SALMETEROL XINAFOATE
     Dosage: 250 BID
  10. LOSARTAN [Concomitant]
     Active Substance: LOSARTAN

REACTIONS (6)
  - Cerebrovascular accident [Unknown]
  - COVID-19 [Unknown]
  - Aphasia [Unknown]
  - Pneumonia [Unknown]
  - Sinus bradycardia [Unknown]
  - Drug ineffective [Unknown]
